FAERS Safety Report 16608127 (Version 1)
Quarter: 2019Q3

REPORT INFORMATION
  Report Type: Spontaneous
  Country: US (occurrence: US)
  Receive Date: 20190719
  Receipt Date: 20190719
  Transmission Date: 20191004
  Serious: Yes (Hospitalization)
  Sender: FDA-Public Use
  Company Number: None

PATIENT
  Age: 62 Year
  Sex: Female

DRUGS (4)
  1. GABAPENTIN, METRONIDAZOL, OMEPRAZOLE [Concomitant]
  2. ENBREL [Suspect]
     Active Substance: ETANERCEPT
     Indication: RHEUMATOID ARTHRITIS
     Dosage: ?          OTHER FREQUENCY:WEEKLY;?
     Route: 058
     Dates: start: 20190306
  3. LASIX, PROLIA, ONDANSETRON [Concomitant]
  4. ALPRAZOLAM, ATENOLOL, TRAZODONE [Concomitant]

REACTIONS (2)
  - Nausea [None]
  - Urinary tract infection [None]

NARRATIVE: CASE EVENT DATE: 20190710
